FAERS Safety Report 4672789-8 (Version None)
Quarter: 2005Q2

REPORT INFORMATION
  Report Type: 
  Country: None (occurrence: None)
  Receive Date: 20050523
  Receipt Date: 20050517
  Transmission Date: 20051028
  Serious: Yes (Hospitalization)
  Sender: FDA-Public Use
  Company Number: 2005-124056-NL

PATIENT
  Age: 33 Year
  Sex: Female

DRUGS (4)
  1. MIRTAZAPINE [Suspect]
     Dosage: 15 MG/30 MG, ORAL
     Route: 048
     Dates: start: 20041005, end: 20041011
  2. MIRTAZAPINE [Suspect]
     Dosage: 15 MG/30 MG, ORAL
     Route: 048
     Dates: start: 20041012, end: 20041025
  3. REBOXETINE [Suspect]
     Dosage: 2 MG, ORAL
     Route: 048
     Dates: start: 20041007, end: 20041123
  4. LORAZEPAM [Concomitant]

REACTIONS (3)
  - CONSTIPATION [None]
  - HAEMATOCHEZIA [None]
  - HAEMORRHOIDS [None]
